FAERS Safety Report 11227211 (Version 1)
Quarter: 2015Q2

REPORT INFORMATION
  Report Type: Spontaneous
  Country: US (occurrence: None)
  Receive Date: 20150626
  Receipt Date: 20150626
  Transmission Date: 20150821
  Serious: Yes (Other)
  Sender: FDA-Public Use
  Company Number: None

PATIENT
  Age: 68 Year
  Sex: Female
  Weight: 53.52 kg

DRUGS (15)
  1. D3 [Concomitant]
     Active Substance: 25-HYDROXYCHOLECALCIFEROL, 5-TRANS-
  2. TUMS [Concomitant]
     Active Substance: CALCIUM CARBONATE
  3. OMEGA 3 [Concomitant]
     Active Substance: OMEGA-3 FATTY ACIDS
  4. OMEPRAZOLE. [Concomitant]
     Active Substance: OMEPRAZOLE
  5. LIDOCAINE JELLY [Concomitant]
     Active Substance: LIDOCAINE
  6. TRIMAGNESIUM [Concomitant]
  7. FLUTICASONE PROPINATE [Suspect]
     Active Substance: FLUTICASONE PROPIONATE
     Indication: NASAL POLYPS
     Dosage: 2 SPRAY
     Route: 045
     Dates: start: 20150604, end: 20150624
  8. FLUTICASONE PROPINATE [Suspect]
     Active Substance: FLUTICASONE PROPIONATE
     Indication: HEADACHE
     Dosage: 2 SPRAY
     Route: 045
     Dates: start: 20150604, end: 20150624
  9. CLOBETASOL [Concomitant]
     Active Substance: CLOBETASOL
  10. MIRAMAX [Concomitant]
  11. COLACE [Concomitant]
     Active Substance: DOCUSATE SODIUM
  12. PROGESTERONE. [Concomitant]
     Active Substance: PROGESTERONE
  13. FLUTICASONE PROPINATE [Suspect]
     Active Substance: FLUTICASONE PROPIONATE
     Indication: NERVE COMPRESSION
     Dosage: 2 SPRAY
     Route: 045
     Dates: start: 20150604, end: 20150624
  14. BENADRYL [Concomitant]
     Active Substance: DIPHENHYDRAMINE HYDROCHLORIDE
  15. FLUTICASONE PROPINATE [Suspect]
     Active Substance: FLUTICASONE PROPIONATE
     Indication: NAUSEA
     Dosage: 2 SPRAY
     Route: 045
     Dates: start: 20150604, end: 20150624

REACTIONS (6)
  - Hypoaesthesia [None]
  - Dysgeusia [None]
  - Tinnitus [None]
  - Blood pressure increased [None]
  - Tachycardia [None]
  - Dyspnoea [None]

NARRATIVE: CASE EVENT DATE: 20150604
